FAERS Safety Report 12342416 (Version 8)
Quarter: 2018Q2

REPORT INFORMATION
  Report Type: Spontaneous
  Country: FI (occurrence: FI)
  Receive Date: 20160506
  Receipt Date: 20180402
  Transmission Date: 20180711
  Serious: Yes (Hospitalization)
  Sender: FDA-Public Use
  Company Number: FI-BIOGEN-2016BI00215763

PATIENT
  Age: 50 Year
  Sex: Female

DRUGS (12)
  1. TECFIDERA [Suspect]
     Active Substance: DIMETHYL FUMARATE
     Indication: MULTIPLE SCLEROSIS
     Dosage: STARTING DOSE
     Route: 048
     Dates: start: 20160323
  2. TECFIDERA [Suspect]
     Active Substance: DIMETHYL FUMARATE
     Dosage: MAINTENANCE DOSE
     Route: 048
     Dates: start: 201605
  3. TECFIDERA [Suspect]
     Active Substance: DIMETHYL FUMARATE
     Route: 048
  4. ENTOCORT [Concomitant]
     Active Substance: BUDESONIDE
     Indication: PRODUCT USED FOR UNKNOWN INDICATION
     Route: 065
  5. TECFIDERA [Suspect]
     Active Substance: DIMETHYL FUMARATE
     Dosage: MAINTENANCE DOSE
     Route: 065
     Dates: start: 20160330
  6. TECFIDERA [Suspect]
     Active Substance: DIMETHYL FUMARATE
     Route: 065
  7. TECFIDERA [Suspect]
     Active Substance: DIMETHYL FUMARATE
     Route: 065
     Dates: end: 20160421
  8. TECFIDERA [Suspect]
     Active Substance: DIMETHYL FUMARATE
     Route: 048
  9. TECFIDERA [Suspect]
     Active Substance: DIMETHYL FUMARATE
     Dosage: MAINTENANCE DOSE
     Route: 048
  10. ESCITALOPRAM [Concomitant]
     Active Substance: ESCITALOPRAM OXALATE
     Indication: PRODUCT USED FOR UNKNOWN INDICATION
     Route: 065
  11. SOMAC [Concomitant]
     Active Substance: PANTOPRAZOLE SODIUM
     Indication: PRODUCT USED FOR UNKNOWN INDICATION
     Route: 065
  12. VITAMIN D [Concomitant]
     Active Substance: CHOLECALCIFEROL
     Indication: PRODUCT USED FOR UNKNOWN INDICATION
     Route: 065

REACTIONS (25)
  - Rotavirus infection [Not Recovered/Not Resolved]
  - Erythema [Unknown]
  - Musculoskeletal disorder [Unknown]
  - Pruritus [Recovered/Resolved]
  - Sinusitis [Recovered/Resolved]
  - Insomnia [Unknown]
  - Otorrhoea [Unknown]
  - Fall [Recovered/Resolved]
  - Dizziness [Unknown]
  - Headache [Recovered/Resolved]
  - Fatigue [Unknown]
  - Asthenia [Recovered/Resolved]
  - Flushing [Recovered/Resolved]
  - Pain in extremity [Unknown]
  - Malaise [Unknown]
  - Feeling cold [Recovered/Resolved]
  - Burning sensation [Unknown]
  - Musculoskeletal stiffness [Unknown]
  - Amnesia [Unknown]
  - Cough [Unknown]
  - Dry skin [Unknown]
  - Chills [Recovered/Resolved]
  - Muscle spasms [Recovered/Resolved]
  - Inflammation [Unknown]
  - Rhinorrhoea [Unknown]

NARRATIVE: CASE EVENT DATE: 20160323
